FAERS Safety Report 21049156 (Version 1)
Quarter: 2022Q3

REPORT INFORMATION
  Report Type: Spontaneous
  Country: FR (occurrence: FR)
  Receive Date: 20220706
  Receipt Date: 20220706
  Transmission Date: 20221027
  Serious: Yes (Other)
  Sender: FDA-Public Use
  Company Number: FR-MYLANLABS-2022M1050305

PATIENT
  Age: 86 Year
  Sex: Male

DRUGS (4)
  1. ALLOPURINOL [Suspect]
     Active Substance: ALLOPURINOL
     Indication: Product used for unknown indication
     Dosage: 100 MILLIGRAM, QD (INTAKE OF 1 DAILY TABLET)
     Route: 065
  2. NEBIVOLOL BIOGARAN [Concomitant]
     Dosage: 5 MILLIGRAM, QD (1 DAILY TABLET)
     Route: 065
  3. INNOVAIR [Concomitant]
     Active Substance: BECLOMETHASONE DIPROPIONATE\FORMOTEROL
     Dosage: UNK (INHALER)
     Route: 065
  4. KARDEGIC [Concomitant]
     Active Substance: ASPIRIN DL-LYSINE
     Dosage: UNK UNK, 5XW (5 DAYS A WEEK FOR 6 MONTHS)
     Route: 065

REACTIONS (2)
  - Haematoma [Unknown]
  - Haemorrhage [Unknown]
